FAERS Safety Report 8070908-7 (Version None)
Quarter: 2012Q1

REPORT INFORMATION
  Report Type: 
  Country: None (occurrence: None)
  Receive Date: 20120125
  Receipt Date: 20111122
  Transmission Date: 20120608
  Serious: Yes (Hospitalization)
  Sender: FDA-Public Use
  Company Number: PHHY2011NO102332

PATIENT
  Age: 50 Year
  Sex: Female
  Weight: 64 kg

DRUGS (7)
  1. VOLTAREN [Concomitant]
     Indication: ABDOMINAL PAIN
     Dosage: 75 MG UNK
     Route: 030
     Dates: start: 20081108
  2. AZITHROMYCIN [Suspect]
     Indication: ANTIBIOTIC PROPHYLAXIS
     Dosage: 500 MG, UNK
     Route: 048
     Dates: start: 20081107, end: 20081107
  3. PENICILLIN [Concomitant]
     Indication: SEPSIS
     Dosage: 3 G, 4X/DAY
     Route: 051
     Dates: start: 20081108, end: 20081120
  4. PROGESTERONE [Concomitant]
     Indication: DYSMENORRHOEA
  5. ACETAMINOPHEN [Concomitant]
     Indication: PROCEDURAL PAIN
     Route: 048
     Dates: start: 20081107, end: 20081108
  6. GARAMYCIN [Concomitant]
     Indication: INFECTION
     Route: 051
     Dates: start: 20081108, end: 20081108
  7. KETOBEMIDONE HYDROCHLORIDE [Concomitant]
     Indication: ABDOMINAL PAIN
     Dosage: 2.5 MG UNK
     Route: 042
     Dates: start: 20081108

REACTIONS (18)
  - VISUAL IMPAIRMENT [None]
  - PYREXIA [None]
  - POST PROCEDURAL HAEMORRHAGE [None]
  - AMNESIA [None]
  - HEPATITIS [None]
  - MUSCLE SPASMS [None]
  - HEPATIC NECROSIS [None]
  - CEREBRAL INFARCTION [None]
  - ANAEMIA [None]
  - FAECAL INCONTINENCE [None]
  - HEPATIC FAILURE [None]
  - RENAL FAILURE ACUTE [None]
  - VOMITING [None]
  - SEPSIS [None]
  - URINARY INCONTINENCE [None]
  - CEREBELLAR INFARCTION [None]
  - LEUKOCYTOSIS [None]
  - ABDOMINAL PAIN [None]
